FAERS Safety Report 6461738-8 (Version None)
Quarter: 2009Q4

REPORT INFORMATION
  Report Type: 
  Country: None (occurrence: None)
  Receive Date: 20091130
  Receipt Date: 20091117
  Transmission Date: 20100525
  Serious: Yes (Other)
  Sender: FDA-Public Use
  Company Number: PHEH2008US08061

PATIENT
  Sex: Female

DRUGS (11)
  1. ESTRADERM [Suspect]
  2. PREMARIN [Suspect]
  3. PROVERA [Suspect]
  4. TOFRANIL [Concomitant]
  5. SYNTHROID [Concomitant]
  6. FLOVENT [Concomitant]
  7. ALBUTEROL [Concomitant]
  8. LEVOTHYROXINE SODIUM [Concomitant]
  9. FORADIL                                 /DEN/ [Concomitant]
  10. DULCOLAX [Concomitant]
  11. SENNA [Concomitant]

REACTIONS (38)
  - ADHESION [None]
  - ANXIETY [None]
  - AORTIC ARTERIOSCLEROSIS [None]
  - ASTHMA [None]
  - AUTOMATIC BLADDER [None]
  - BACK PAIN [None]
  - BREAST CANCER [None]
  - BREAST LUMP REMOVAL [None]
  - BREAST MASS [None]
  - CARDIAC PACEMAKER INSERTION [None]
  - CENTRAL VENOUS CATHETER REMOVAL [None]
  - CENTRAL VENOUS CATHETERISATION [None]
  - COLONIC POLYP [None]
  - CONNECTIVE TISSUE DISORDER [None]
  - COUGH [None]
  - DYSPNOEA EXERTIONAL [None]
  - EXOSTOSIS [None]
  - GASTROOESOPHAGEAL REFLUX DISEASE [None]
  - HAEMORRHOID OPERATION [None]
  - HYPOTHYROIDISM [None]
  - INJURY [None]
  - INTERVERTEBRAL DISC DEGENERATION [None]
  - LUNG INFILTRATION [None]
  - LYMPHADENECTOMY [None]
  - MELANOSIS COLI [None]
  - METASTASES TO LYMPH NODES [None]
  - MIGRAINE [None]
  - MODIFIED RADICAL MASTECTOMY [None]
  - NEPHROLITHIASIS [None]
  - OEDEMA PERIPHERAL [None]
  - OSTEOARTHRITIS [None]
  - PAIN IN EXTREMITY [None]
  - PNEUMONIA [None]
  - POLYPECTOMY [None]
  - PYREXIA [None]
  - RECTAL ABSCESS [None]
  - SURGERY [None]
  - THROMBOSIS [None]
